FAERS Safety Report 5428761-3 (Version None)
Quarter: 2007Q3

REPORT INFORMATION
  Report Type: 
  Country: None (occurrence: None)
  Receive Date: 20070827
  Receipt Date: 20070827
  Transmission Date: 20080115
  Serious: Yes (Other)
  Sender: FDA-Public Use
  Company Number: None

PATIENT
  Age: 58 Year
  Sex: Female
  Weight: 74.8435 kg

DRUGS (3)
  1. MILK OF MAGNESIA N/A DOLLAR GENERAL [Suspect]
     Indication: CONSTIPATION
     Dosage: 1-1/2 TABLESPOONS DAILY PO
     Route: 048
  2. SYNTHROID [Concomitant]
  3. DONNATAL [Concomitant]

REACTIONS (5)
  - ABDOMINAL DISTENSION [None]
  - ABDOMINAL PAIN UPPER [None]
  - CONSTIPATION [None]
  - DYSGEUSIA [None]
  - PHARMACEUTICAL PRODUCT COMPLAINT [None]
